FAERS Safety Report 7516192-1 (Version None)
Quarter: 2011Q2

REPORT INFORMATION
  Report Type: 
  Country: None (occurrence: None)
  Receive Date: 20110520
  Receipt Date: 20110511
  Transmission Date: 20111010
  Serious: Yes (Hospitalization)
  Sender: FDA-Public Use
  Company Number: UTC-007047

PATIENT
  Age: 69 Year
  Sex: Female

DRUGS (2)
  1. ADCIRCA [Concomitant]
  2. REMODULIN [Suspect]
     Indication: PULMONARY ARTERIAL HYPERTENSION
     Dosage: INTRAVENOUS
     Route: 042
     Dates: start: 20100630

REACTIONS (2)
  - DYSPNOEA [None]
  - FLUID OVERLOAD [None]
